FAERS Safety Report 4295454-8 (Version None)
Quarter: 2004Q1

REPORT INFORMATION
  Report Type: 
  Country: None (occurrence: None)
  Receive Date: 20040211
  Receipt Date: 20040204
  Transmission Date: 20041129
  Serious: Yes (Life-Threatening, Hospitalization)
  Sender: FDA-Public Use
  Company Number: HQWYE634025FEB03

PATIENT
  Age: 58 Year
  Sex: Female

DRUGS (7)
  1. SIROLIMUS (SIROLIMUS, TABLET) LOT NO.: 2002PA1339 [Suspect]
     Indication: PROPHYLAXIS AGAINST TRANSPLANT REJECTION
     Dosage: 2 MG 1X PER 1 DAY, ORAL
     Route: 048
     Dates: start: 19990425, end: 20030320
  2. CYCLOSPORINE [Concomitant]
  3. PREDNISONE [Concomitant]
  4. OMEPRAZOLE [Concomitant]
  5. PROPRANOLOL HCL [Concomitant]
  6. CALCITROL (CALCIUM CARBONATE/ERGOCALCIFEROL/RETINOL) [Concomitant]
  7. TRANKIMAZIN (ALPRAZOLAM) [Concomitant]

REACTIONS (4)
  - HEPATITIS CHOLESTATIC [None]
  - PANCREATIC CARCINOMA [None]
  - POST PROCEDURAL HAEMORRHAGE [None]
  - STAPHYLOCOCCAL INFECTION [None]
